FAERS Safety Report 17524269 (Version 1)
Quarter: 2020Q1

REPORT INFORMATION
  Report Type: Spontaneous
  Country: JP (occurrence: JP)
  Receive Date: 20200310
  Receipt Date: 20200310
  Transmission Date: 20200409
  Serious: Yes (Hospitalization)
  Sender: FDA-Public Use
  Company Number: JP-UCBSA-2020010169

PATIENT
  Sex: Male

DRUGS (2)
  1. NEUPRO [Suspect]
     Active Substance: ROTIGOTINE
     Indication: PARKINSON^S DISEASE
     Dosage: 9 MG/4MG/24 HR
  2. NEUPRO [Suspect]
     Active Substance: ROTIGOTINE
     Dosage: 4.5 MG/2 MG/24 HR

REACTIONS (4)
  - Fall [Unknown]
  - Upper limb fracture [Unknown]
  - Application site erythema [Unknown]
  - Wrong technique in product usage process [Unknown]
